FAERS Safety Report 18774934 (Version 1)
Quarter: 2021Q1

REPORT INFORMATION
  Report Type: Spontaneous
  Country: CN (occurrence: CN)
  Receive Date: 20210122
  Receipt Date: 20210122
  Transmission Date: 20210419
  Serious: Yes (Other)
  Sender: FDA-Public Use
  Company Number: CN-PURDUE-USA-2021-0199658

PATIENT
  Age: 51 Year
  Sex: Male

DRUGS (6)
  1. OXYCODONE HYDROCHLORIDE. [Suspect]
     Active Substance: OXYCODONE HYDROCHLORIDE
     Dosage: 30 MG, Q12H
     Route: 048
  2. FENTANYL. [Concomitant]
     Active Substance: FENTANYL
     Indication: ANALGESIC THERAPY
     Dosage: 6.3 MG [4.2 MG + 2.1 MG], Q72H
     Route: 062
  3. FENTANYL. [Concomitant]
     Active Substance: FENTANYL
     Dosage: 4.2 MG, Q72H
     Route: 062
  4. MORPHINE [Concomitant]
     Active Substance: MORPHINE
     Indication: BREAKTHROUGH PAIN
     Dosage: 5 MG, UNK
  5. OXYCODONE HYDROCHLORIDE. [Suspect]
     Active Substance: OXYCODONE HYDROCHLORIDE
     Indication: ANALGESIC THERAPY
     Dosage: 30 MG, SINGLE
     Route: 048
  6. OXYCODONE HYDROCHLORIDE. [Suspect]
     Active Substance: OXYCODONE HYDROCHLORIDE
     Dosage: 20 MG FOR 12H
     Route: 048

REACTIONS (6)
  - Pain [Recovering/Resolving]
  - Decreased appetite [Unknown]
  - Vomiting [Recovered/Resolved]
  - Rectal cancer recurrent [Unknown]
  - Nausea [Recovered/Resolved]
  - Metastases to lung [Unknown]
